FAERS Safety Report 9303827 (Version 2)
Quarter: 2013Q2

REPORT INFORMATION
  Report Type: Spontaneous
  Country: GR (occurrence: GR)
  Receive Date: 20130522
  Receipt Date: 20130607
  Transmission Date: 20140414
  Serious: Yes (Other)
  Sender: FDA-Public Use
  Company Number: GR-GLAXOSMITHKLINE-B0893364A

PATIENT
  Age: 70 Year
  Sex: Female

DRUGS (5)
  1. SEROXAT [Suspect]
     Indication: ANXIETY DISORDER
     Route: 048
  2. IRON SUPPLEMENT [Concomitant]
  3. SINTROM [Concomitant]
     Indication: CARDIAC DISORDER
  4. XANAX [Concomitant]
  5. ONBREZ [Concomitant]
     Indication: ASTHMA

REACTIONS (9)
  - Urinary retention [Recovered/Resolved]
  - Balance disorder [Recovered/Resolved]
  - Faeces discoloured [Recovered/Resolved]
  - Local swelling [Recovered/Resolved]
  - Rash macular [Recovered/Resolved]
  - Fall [Recovered/Resolved]
  - Oedema [Recovered/Resolved]
  - Skin discolouration [Recovered/Resolved]
  - Headache [Recovered/Resolved]
